FAERS Safety Report 7085808-9 (Version None)
Quarter: 2010Q4

REPORT INFORMATION
  Report Type: 
  Country: None (occurrence: None)
  Receive Date: 20101105
  Receipt Date: 20101027
  Transmission Date: 20110411
  Serious: Yes (Other)
  Sender: FDA-Public Use
  Company Number: US-ABBOTT-10P-163-0682439-00

PATIENT
  Sex: Male
  Weight: 93.07 kg

DRUGS (4)
  1. HUMIRA [Suspect]
     Indication: PSORIASIS
     Dates: start: 20050101
  2. PROSCAR [Concomitant]
     Indication: PROSTATIC DISORDER
  3. HYTRIN [Concomitant]
     Indication: PROSTATIC DISORDER
  4. LUNESTA [Concomitant]
     Indication: SLEEP DISORDER THERAPY

REACTIONS (2)
  - BASAL CELL CARCINOMA [None]
  - SKIN PAPILLOMA [None]
